FAERS Safety Report 10070124 (Version 1)
Quarter: 2014Q2

REPORT INFORMATION
  Report Type: Spontaneous
  Country: FR (occurrence: None)
  Receive Date: 20140408
  Receipt Date: 20140408
  Transmission Date: 20141212
  Serious: Yes (Congenital Anomaly, Other)
  Sender: FDA-Public Use
  Company Number: 2014P1002720

PATIENT
  Sex: Female

DRUGS (2)
  1. PYRIMETHAMINE [Suspect]
     Indication: MALARIA PROPHYLAXIS
  2. SULFADOXINE [Suspect]
     Indication: MALARIA PROPHYLAXIS

REACTIONS (7)
  - Abortion spontaneous [None]
  - Stillbirth [None]
  - Premature delivery [None]
  - Polydactyly [None]
  - Congenital malaria [None]
  - Maternal exposure during pregnancy [None]
  - Maternal drugs affecting foetus [None]
